FAERS Safety Report 15211488 (Version 1)
Quarter: 2018Q3

REPORT INFORMATION
  Report Type: Spontaneous
  Country: US (occurrence: US)
  Receive Date: 20180630
  Receipt Date: 20180630
  Transmission Date: 20181010
  Serious: Yes (Hospitalization)
  Sender: FDA-Public Use
  Company Number: None

PATIENT
  Age: 69 Year
  Sex: Male
  Weight: 72.12 kg

DRUGS (1)
  1. PAZOPANIB (GW786034) [Suspect]
     Active Substance: PAZOPANIB
     Dates: end: 20180514

REACTIONS (6)
  - Dysphagia [None]
  - Hypophagia [None]
  - Jejunal perforation [None]
  - Abdominal pain [None]
  - Dehydration [None]
  - Intestinal obstruction [None]

NARRATIVE: CASE EVENT DATE: 20180515
